FAERS Safety Report 19231610 (Version 1)
Quarter: 2021Q2

REPORT INFORMATION
  Report Type: Report from Study
  Country: US (occurrence: US)
  Receive Date: 20210507
  Receipt Date: 20210507
  Transmission Date: 20210717
  Serious: No
  Sender: FDA-Public Use
  Company Number: US-INCYTE CORPORATION-2021IN002812

PATIENT

DRUGS (1)
  1. JAKAFI [Suspect]
     Active Substance: RUXOLITINIB
     Indication: CHRONIC LYMPHOCYTIC LEUKAEMIA
     Dosage: 20 MILLIGRAM, QD
     Route: 048

REACTIONS (1)
  - Off label use [Unknown]
